FAERS Safety Report 20196919 (Version 1)
Quarter: 2021Q4

REPORT INFORMATION
  Report Type: Other
  Country: CA (occurrence: CA)
  Receive Date: 20211217
  Receipt Date: 20211217
  Transmission Date: 20220303
  Serious: Yes (Hospitalization)
  Sender: FDA-Public Use
  Company Number: CA-CELLTRION INC.-2021CA016903

PATIENT

DRUGS (15)
  1. RITUXIMAB [Suspect]
     Active Substance: RITUXIMAB
     Indication: Rheumatoid arthritis
     Dosage: 1000.0 MILLIGRAM
     Route: 041
  2. ACETAMINOPHEN [Concomitant]
     Active Substance: ACETAMINOPHEN
     Indication: Premedication
     Dosage: 650.0 MILLIGRAM
     Route: 048
  3. ALENDRONATE SODIUM [Concomitant]
     Active Substance: ALENDRONATE SODIUM
  4. APIXABAN [Concomitant]
     Active Substance: APIXABAN
  5. BUPROPION [Concomitant]
     Active Substance: BUPROPION
  6. CALCIUM [Concomitant]
     Active Substance: CALCIUM
  7. CITALOPRAM [Concomitant]
     Active Substance: CITALOPRAM HYDROBROMIDE
  8. IRON [Concomitant]
     Active Substance: IRON
  9. LASIX [Concomitant]
     Active Substance: FUROSEMIDE
  10. LEFLUNOMIDE [Concomitant]
     Active Substance: LEFLUNOMIDE
  11. LEVOTHYROXINE SODIUM [Concomitant]
     Active Substance: LEVOTHYROXINE SODIUM
     Route: 065
  12. METHYLPREDNISOLONE [Concomitant]
     Active Substance: METHYLPREDNISOLONE
     Indication: Premedication
     Dosage: 100.0 MILLIGRAM
     Route: 042
  13. MYRBETRIQ [Concomitant]
     Active Substance: MIRABEGRON
  14. NIFEDIPINE [Concomitant]
     Active Substance: NIFEDIPINE
  15. SPIRONOLACTONE [Concomitant]
     Active Substance: SPIRONOLACTONE

REACTIONS (1)
  - Pleural effusion [Unknown]
